FAERS Safety Report 8124399 (Version 2)
Quarter: 2014Q2

REPORT INFORMATION
  Report Type: Spontaneous
  Country: US (occurrence: US)
  Receive Date: 20110907
  Receipt Date: 20140606
  Transmission Date: 20141212
  Serious: Yes (Hospitalization)
  Sender: FDA-Public Use
  Company Number: US-GLAXOSMITHKLINE-A0802274A

PATIENT
  Sex: Male
  Weight: 102.3 kg

DRUGS (15)
  1. AVANDIA [Suspect]
     Indication: DIABETES MELLITUS
     Dosage: 8MG PER DAY
     Route: 048
     Dates: start: 20000101, end: 20080411
  2. ROSIGLITAZONE MALEATE [Suspect]
     Indication: DIABETES MELLITUS
     Route: 048
     Dates: start: 200504
  3. COLCHICINE [Concomitant]
  4. METOPROLOL [Concomitant]
  5. GLYBURIDE [Concomitant]
  6. COUMADIN [Concomitant]
  7. ALLOPURINOL [Concomitant]
  8. RANITIDINE [Concomitant]
  9. LANOXIN [Concomitant]
  10. LOVASTATIN [Concomitant]
  11. ASPIRIN [Concomitant]
  12. PLAVIX [Concomitant]
  13. VASOTEC [Concomitant]
  14. LASIX [Concomitant]
  15. NORVASC [Concomitant]

REACTIONS (7)
  - Myocardial infarction [Unknown]
  - Cardiac arrest [Unknown]
  - Atrial fibrillation [Unknown]
  - Cardiac failure congestive [Unknown]
  - Ischaemic cardiomyopathy [Unknown]
  - Coronary artery disease [Unknown]
  - Atrial flutter [Unknown]
